FAERS Safety Report 6152201-2 (Version None)
Quarter: 2009Q2

REPORT INFORMATION
  Report Type: 
  Country: None (occurrence: None)
  Receive Date: 20090410
  Receipt Date: 20081125
  Transmission Date: 20091009
  Serious: No
  Sender: FDA-Public Use
  Company Number: US-ASTRAZENECA-2008UW26479

PATIENT
  Age: 53 Year
  Sex: Female
  Weight: 79.4 kg

DRUGS (1)
  1. TENORMIN [Suspect]
     Indication: HYPERTENSION
     Route: 048

REACTIONS (3)
  - ABDOMINAL DISCOMFORT [None]
  - ALOPECIA [None]
  - WEIGHT DECREASED [None]
